FAERS Safety Report 4931355-7 (Version None)
Quarter: 2006Q1

REPORT INFORMATION
  Report Type: 
  Country: None (occurrence: None)
  Receive Date: 20060228
  Receipt Date: 20060215
  Transmission Date: 20060701
  Serious: Yes (Hospitalization)
  Sender: FDA-Public Use
  Company Number: 2006022613

PATIENT
  Age: 80 Year
  Sex: Male

DRUGS (2)
  1. VFEND [Suspect]
     Indication: ASPERGILLOSIS
     Dosage: INTRAVENOUS
     Route: 042
     Dates: start: 20060202, end: 20060208
  2. VFEND [Suspect]
     Indication: ASPERGILLOSIS
     Dosage: ORAL
     Route: 048
     Dates: start: 20060209, end: 20060213

REACTIONS (2)
  - DISEASE RECURRENCE [None]
  - INTERSTITIAL LUNG DISEASE [None]
